FAERS Safety Report 10477883 (Version 1)
Quarter: 2014Q3

REPORT INFORMATION
  Report Type: Spontaneous
  Country: US (occurrence: None)
  Receive Date: 20140925
  Receipt Date: 20140925
  Transmission Date: 20150326
  Serious: Yes (Disabling)
  Sender: FDA-Public Use
  Company Number: None

PATIENT
  Age: 79 Year
  Sex: Female
  Weight: 60.78 kg

DRUGS (5)
  1. CALCIUM [Concomitant]
     Active Substance: CALCIUM
  2. OMEGA 3 [Concomitant]
     Active Substance: OMEGA-3 FATTY ACIDS
  3. VITAMIN B COMPLEX [Concomitant]
     Active Substance: CYANOCOBALAMIN\DEXPANTHENOL\NIACINAMIDE\PYRIDOXINE HYDROCHLORIDE\RIBOFLAVIN 5^-PHOSPHATE SODIUM\THIAMINE HYDROCHLORIDE\VITAMIN B COMPLEX
  4. ACIDOLPHILUS [Concomitant]
  5. VANCOMYCIN LILLEY [Suspect]
     Active Substance: VANCOMYCIN
     Indication: STAPHYLOCOCCAL INFECTION
     Dates: start: 20121113, end: 20121226

REACTIONS (9)
  - Quality of life decreased [None]
  - Vestibular disorder [None]
  - Feeling abnormal [None]
  - Disturbance in attention [None]
  - Dizziness [None]
  - Fatigue [None]
  - Balance disorder [None]
  - Infusion related reaction [None]
  - Feeling drunk [None]

NARRATIVE: CASE EVENT DATE: 20121113
